FAERS Safety Report 4396744-0 (Version None)
Quarter: 2004Q3

REPORT INFORMATION
  Report Type: 
  Country: None (occurrence: None)
  Receive Date: 20040709
  Receipt Date: 20040625
  Transmission Date: 20050211
  Serious: Yes (Death)
  Sender: FDA-Public Use
  Company Number: 2004JP001238

PATIENT
  Age: 57 Year
  Sex: Male
  Weight: 53.5 kg

DRUGS (2)
  1. TACROLIMUS CAPSULES (TACROLIMUS CAPSULES) [Suspect]
     Indication: RENAL TRANSPLANT
     Dosage: 4.00 MG, BID, ORAL
     Route: 048
     Dates: start: 20040312, end: 20040319
  2. INSULIN [Concomitant]

REACTIONS (3)
  - CARDIOVASCULAR DISORDER [None]
  - DYSPNOEA [None]
  - HAEMOLYSIS [None]
